FAERS Safety Report 12129850 (Version 3)
Quarter: 2017Q2

REPORT INFORMATION
  Report Type: Spontaneous
  Country: NO (occurrence: NO)
  Receive Date: 20160229
  Receipt Date: 20170512
  Transmission Date: 20170829
  Serious: Yes (Disabling)
  Sender: FDA-Public Use
  Company Number: NO-009507513-1602NOR012565

PATIENT
  Age: 37 Year
  Sex: Female

DRUGS (5)
  1. CYCLIZINE [Concomitant]
     Active Substance: CYCLIZINE
  2. ZANTAC [Concomitant]
     Active Substance: RANITIDINE HYDROCHLORIDE
  3. RANITIDINE. [Concomitant]
     Active Substance: RANITIDINE
  4. CIRCADIN [Concomitant]
     Active Substance: MELATONIN
  5. TIMOTHY GRASS POLLEN ALLERGEN EXTRACT [Suspect]
     Active Substance: PHLEUM PRATENSE POLLEN
     Indication: SEASONAL ALLERGY
     Dosage: ORAL LYOPHILISATE
     Route: 065
     Dates: start: 20121127, end: 20130925

REACTIONS (10)
  - Mouth swelling [Recovered/Resolved]
  - Arthralgia [Unknown]
  - Myalgia [Unknown]
  - Dyspepsia [Unknown]
  - Post viral fatigue syndrome [Not Recovered/Not Resolved]
  - Pharyngeal oedema [Recovered/Resolved]
  - Abdominal pain upper [Unknown]
  - Regurgitation [Unknown]
  - Chest pain [Unknown]
  - Paraesthesia oral [Recovered/Resolved]

NARRATIVE: CASE EVENT DATE: 2012
